FAERS Safety Report 19426473 (Version 1)
Quarter: 2021Q2

REPORT INFORMATION
  Report Type: Spontaneous
  Country: US (occurrence: US)
  Receive Date: 20210616
  Receipt Date: 20210616
  Transmission Date: 20210717
  Serious: Yes (Hospitalization, Other)
  Sender: FDA-Public Use
  Company Number: US-ANIPHARMA-2021-US-011519

PATIENT
  Age: 47 Year
  Sex: Female

DRUGS (3)
  1. PAROXETINE. [Concomitant]
     Active Substance: PAROXETINE
  2. METHYLPHENIDATE HYDROCHLORIDE EXTENDED?RELEASE TABLETS USP (NON?SPECIF [Suspect]
     Active Substance: METHYLPHENIDATE HYDROCHLORIDE
     Indication: PRODUCT USED FOR UNKNOWN INDICATION
  3. METHADONE [Suspect]
     Active Substance: METHADONE HYDROCHLORIDE
     Indication: PRODUCT USED FOR UNKNOWN INDICATION

REACTIONS (2)
  - Chorea [Recovered/Resolved]
  - Drug interaction [Recovered/Resolved]
